FAERS Safety Report 25090959 (Version 2)
Quarter: 2025Q1

REPORT INFORMATION
  Report Type: Spontaneous
  Country: FR (occurrence: FR)
  Receive Date: 20250318
  Receipt Date: 20250325
  Transmission Date: 20250408
  Serious: Yes (Death, Life-Threatening)
  Sender: MYLAN
  Company Number: None

PATIENT
  Sex: Male

DRUGS (2)
  1. NALOXONE [4]
     Active Substance: NALOXONE
     Indication: Overdose
  2. FLUMAZENIL [Suspect]
     Active Substance: FLUMAZENIL
     Indication: Overdose
     Dates: start: 20250224, end: 20250224

REACTIONS (2)
  - Death [Fatal]
  - Product prescribing error [Recovered/Resolved]

NARRATIVE: CASE EVENT DATE: 20250224
